FAERS Safety Report 4340937-5 (Version None)
Quarter: 2004Q2

REPORT INFORMATION
  Report Type: 
  Country: None (occurrence: None)
  Receive Date: 20040419
  Receipt Date: 20040325
  Transmission Date: 20050107
  Serious: Yes (Life-Threatening)
  Sender: FDA-Public Use
  Company Number: FR-BRISTOL-MYERS SQUIBB COMPANY-12550828

PATIENT
  Age: 56 Year
  Sex: Male

DRUGS (6)
  1. CYCLOPHOSPHAMIDE [Suspect]
     Indication: NON-HODGKIN'S LYMPHOMA
     Route: 042
     Dates: start: 20020207
  2. ETOPOSIDE [Suspect]
     Indication: NON-HODGKIN'S LYMPHOMA
     Dosage: THERAPY DATES: 07-FEB-2002 TO 28-JUN-2002
     Route: 042
     Dates: start: 20020628, end: 20020628
  3. ADRIBLASTINE [Concomitant]
     Indication: NON-HODGKIN'S LYMPHOMA
     Dosage: THERAPY DATES: 07-FEB-2002 TO 28-JUN-2002
     Route: 042
     Dates: start: 20020628, end: 20020628
  4. ROFERON-A [Suspect]
     Indication: NON-HODGKIN'S LYMPHOMA
     Dosage: THERAPY DATES: 07-FEB-2002 TO 21-NOV-2002  DOSAGE: 4.5 ^MU^
     Route: 058
     Dates: start: 20021121, end: 20021121
  5. PREDNISONE [Suspect]
     Indication: NON-HODGKIN'S LYMPHOMA
     Route: 048
     Dates: start: 20020207, end: 20020628
  6. MABTHERA [Suspect]
     Indication: NON-HODGKIN'S LYMPHOMA
     Route: 042
     Dates: start: 20020404, end: 20020628

REACTIONS (1)
  - LUNG NEOPLASM MALIGNANT [None]
